FAERS Safety Report 12664784 (Version 1)
Quarter: 2016Q3

REPORT INFORMATION
  Report Type: Spontaneous
  Country: AU (occurrence: AU)
  Receive Date: 20160818
  Receipt Date: 20160818
  Transmission Date: 20161109
  Serious: Yes (Other)
  Sender: FDA-Public Use
  Company Number: AU-PFIZER INC-2016385061

PATIENT
  Age: 38 Year
  Sex: Male

DRUGS (1)
  1. VENLAFAXINE HCL [Suspect]
     Active Substance: VENLAFAXINE HYDROCHLORIDE
     Dosage: UP TO 4050 MG

REACTIONS (3)
  - Chest pain [Unknown]
  - Intentional overdose [Unknown]
  - Central nervous system stimulation [Unknown]
